FAERS Safety Report 7705558-2 (Version None)
Quarter: 2011Q3

REPORT INFORMATION
  Report Type: 
  Country: None (occurrence: None)
  Receive Date: 20110818
  Receipt Date: 20110804
  Transmission Date: 20111222
  Serious: Yes (Hospitalization)
  Sender: FDA-Public Use
  Company Number: DSU-2011-05786

PATIENT
  Age: 78 Year
  Sex: Male
  Weight: 81.6475 kg

DRUGS (1)
  1. BENICAR HCT [Suspect]
     Indication: HYPERTENSION
     Dosage: 40/12.5MG (QD), PER ORAL
     Route: 048

REACTIONS (4)
  - PROSTATIC DISORDER [None]
  - POLLAKIURIA [None]
  - URINE OUTPUT INCREASED [None]
  - DYSURIA [None]
